FAERS Safety Report 7618646-6 (Version None)
Quarter: 2011Q3

REPORT INFORMATION
  Report Type: 
  Country: None (occurrence: None)
  Receive Date: 20110718
  Receipt Date: 20110708
  Transmission Date: 20111222
  Serious: Yes (Hospitalization)
  Sender: FDA-Public Use
  Company Number: US-CELGENEUS-163-C5013-11040412

PATIENT
  Sex: Male
  Weight: 70.37 kg

DRUGS (12)
  1. PREDNISONE [Suspect]
     Indication: PROSTATE CANCER
     Dosage: 5 MILLIGRAM
     Route: 065
     Dates: start: 20110329
  2. TOPROL-XL [Concomitant]
     Indication: HYPERTENSION
     Dosage: 100 MILLIGRAM
     Route: 048
     Dates: start: 20110322
  3. CIPROFLOXACIN HCL [Concomitant]
     Dosage: 250 MILLIGRAM
     Route: 048
     Dates: start: 20110322
  4. FAMOTIDINE [Concomitant]
     Indication: VOMITING
     Dosage: 20 MILLIGRAM
     Route: 051
  5. DOCETAXEL [Suspect]
     Indication: PROSTATE CANCER
     Dosage: 137 MILLIGRAM
     Route: 048
     Dates: start: 20110329, end: 20110329
  6. ZOFRAN [Concomitant]
     Indication: VOMITING
     Dosage: 8 MILLIGRAM
     Dates: start: 20110403
  7. LEVAQUIN [Concomitant]
     Dosage: 750 MILLIGRAM
  8. LEUKINE [Concomitant]
     Indication: NEUTROPENIA
     Route: 065
  9. SIMVASTATIN [Concomitant]
     Route: 065
  10. LENALIDOMIDE [Suspect]
     Indication: PROSTATE CANCER
     Dosage: 25 MILLIGRAM
     Route: 048
     Dates: start: 20110329, end: 20110403
  11. ASPIRIN [Concomitant]
     Indication: THROMBOSIS PROPHYLAXIS
     Dosage: 81 MILLIGRAM
     Route: 048
     Dates: start: 20110322
  12. VASOTEC [Concomitant]
     Indication: HYPERTENSION
     Route: 048
     Dates: start: 20110324

REACTIONS (1)
  - SYNCOPE [None]
